FAERS Safety Report 7224773-8 (Version None)
Quarter: 2011Q1

REPORT INFORMATION
  Report Type: 
  Country: None (occurrence: None)
  Receive Date: 20110113
  Receipt Date: 20110110
  Transmission Date: 20110831
  Serious: No
  Sender: FDA-Public Use
  Company Number: US-PFIZER INC-2011006736

PATIENT
  Sex: Male

DRUGS (1)
  1. ARTHROTEC [Suspect]

REACTIONS (1)
  - DIARRHOEA [None]
